FAERS Safety Report 20458531 (Version 5)
Quarter: 2022Q1

REPORT INFORMATION
  Report Type: Report from Study
  Country: CA (occurrence: CA)
  Receive Date: 20220211
  Receipt Date: 20220301
  Transmission Date: 20220423
  Serious: Yes (Hospitalization)
  Sender: FDA-Public Use
  Company Number: CA-BIOGEN-2022BI01094324

PATIENT
  Age: 11 Year
  Sex: Female

DRUGS (1)
  1. TECFIDERA [Suspect]
     Active Substance: DIMETHYL FUMARATE
     Indication: Multiple sclerosis
     Route: 048
     Dates: start: 20210628

REACTIONS (3)
  - Multiple sclerosis relapse [Not Recovered/Not Resolved]
  - Headache [Recovered/Resolved]
  - Off label use [Unknown]

NARRATIVE: CASE EVENT DATE: 20210628
